FAERS Safety Report 20667211 (Version 1)
Quarter: 2022Q2

REPORT INFORMATION
  Report Type: Spontaneous
  Country: US (occurrence: US)
  Receive Date: 20220404
  Receipt Date: 20220404
  Transmission Date: 20220721
  Serious: No
  Sender: FDA-Public Use
  Company Number: US-SA-2022SA110740

PATIENT
  Age: 25 Year
  Sex: Female

DRUGS (1)
  1. DUPIXENT [Suspect]
     Active Substance: DUPILUMAB
     Dosage: 300 MG, OTHER
     Route: 058
     Dates: start: 202109

REACTIONS (8)
  - Nausea [Unknown]
  - Insomnia [Unknown]
  - Pain of skin [Unknown]
  - Injection site swelling [Unknown]
  - Injection site pruritus [Unknown]
  - Eczema [Unknown]
  - Therapeutic response decreased [Unknown]
  - Dry eye [Unknown]

NARRATIVE: CASE EVENT DATE: 20220301
